FAERS Safety Report 25218255 (Version 3)
Quarter: 2025Q3

REPORT INFORMATION
  Report Type: Spontaneous
  Country: EU (occurrence: EU)
  Receive Date: 20250421
  Receipt Date: 20250805
  Transmission Date: 20251021
  Serious: Yes (Life-Threatening, Other)
  Sender: GLAXOSMITHKLINE
  Company Number: None

PATIENT
  Age: 31 Year
  Sex: Female
  Weight: 123 kg

DRUGS (4)
  1. LAMICTAL [Suspect]
     Active Substance: LAMOTRIGINE
     Indication: Mental disorder
     Dosage: 100 MG, QD (4 X 25 MG/DAY)
     Dates: start: 20250319, end: 20250409
  2. QUETIAPINE [Suspect]
     Active Substance: QUETIAPINE
     Indication: Mental disorder
     Dosage: 250 MG, QD
     Dates: start: 20250325, end: 20250409
  3. QUETIAPINE [4]
     Active Substance: QUETIAPINE
     Indication: Mental disorder
     Dosage: 150 MG, QD
     Dates: start: 20250115, end: 20250324
  4. PAROXETINE HYDROCHLORIDE [Concomitant]
     Active Substance: PAROXETINE HYDROCHLORIDE
     Indication: Mental disorder
     Dosage: 20 MG, QD (20 MG X1/DAY)
     Dates: start: 20241119, end: 20250409

REACTIONS (4)
  - Toxic epidermal necrolysis [Recovering/Resolving]
  - Incorrect dosage administered [Unknown]
  - Off label use [Unknown]
  - Product availability issue [Unknown]

NARRATIVE: CASE EVENT DATE: 20250319
